FAERS Safety Report 4507525-9 (Version None)
Quarter: 2004Q4

REPORT INFORMATION
  Report Type: 
  Country: None (occurrence: None)
  Receive Date: 20041018
  Receipt Date: 20040826
  Transmission Date: 20050328
  Serious: No
  Sender: FDA-Public Use
  Company Number: 208376

PATIENT
  Age: 73 Year
  Sex: Female
  Weight: 55 kg

DRUGS (7)
  1. XOLAIR [Suspect]
     Indication: ASTHMA
     Dosage: 300 MG, Q2W, SUBCUTANEOUS
     Route: 058
     Dates: start: 20031216, end: 20040720
  2. OS-CAL (CALCIUM CARBONATE) [Concomitant]
  3. ACTONEL [Concomitant]
  4. ANTIDEPRESSANTS (ANTIDEPRESSANTS) [Concomitant]
  5. ACCOLATE [Concomitant]
  6. FLOVENT [Concomitant]
  7. TRILISATE (CHOLINE SALICYLATE, MAGNESIUM SALICYLATE) [Concomitant]

REACTIONS (1)
  - ALOPECIA [None]
